FAERS Safety Report 5767829-9 (Version None)
Quarter: 2008Q2

REPORT INFORMATION
  Report Type: 
  Country: None (occurrence: None)
  Receive Date: 20080612
  Receipt Date: 20080604
  Transmission Date: 20081010
  Serious: Yes (Hospitalization)
  Sender: FDA-Public Use
  Company Number: PHNU2008DE02044

PATIENT

DRUGS (1)
  1. RASILEZ [Suspect]

REACTIONS (1)
  - ILLUSION [None]
